FAERS Safety Report 6931747-0 (Version None)
Quarter: 2010Q3

REPORT INFORMATION
  Report Type: 
  Country: None (occurrence: None)
  Receive Date: 20100819
  Receipt Date: 20100813
  Transmission Date: 20110219
  Serious: Yes (Hospitalization)
  Sender: FDA-Public Use
  Company Number: KR-B.I. PHARMACEUTICALS,INC./RIDGEFIELD-2010-CS-00734RK

PATIENT
  Sex: Male

DRUGS (2)
  1. SPIRIVA [Suspect]
     Indication: LUNG DISORDER
  2. CHAMPIX [Suspect]
     Indication: EX-TOBACCO USER
     Dosage: 2 MG
     Route: 048
     Dates: start: 20090906

REACTIONS (1)
  - PANCREATITIS ACUTE [None]
